FAERS Safety Report 20440850 (Version 2)
Quarter: 2022Q1

REPORT INFORMATION
  Report Type: Spontaneous
  Country: IT (occurrence: IT)
  Receive Date: 20220207
  Receipt Date: 20220224
  Transmission Date: 20220423
  Serious: Yes (Death, Hospitalization)
  Sender: FDA-Public Use
  Company Number: IT-TEVA-2022-IT-2005254

PATIENT
  Age: 66 Year
  Sex: Female

DRUGS (3)
  1. LINEZOLID [Suspect]
     Active Substance: LINEZOLID
     Indication: Pseudomonas infection
     Route: 065
     Dates: start: 2020
  2. METHYLPREDNISOLONE [Suspect]
     Active Substance: METHYLPREDNISOLONE
     Indication: Pseudomonas infection
     Route: 065
     Dates: start: 2020
  3. CEFTAZIDIME [Suspect]
     Active Substance: CEFTAZIDIME
     Indication: Pseudomonas infection
     Route: 065
     Dates: start: 2020

REACTIONS (1)
  - Drug ineffective [Fatal]
